FAERS Safety Report 24292844 (Version 1)
Quarter: 2024Q3

REPORT INFORMATION
  Report Type: Spontaneous
  Country: US (occurrence: None)
  Receive Date: 20240906
  Receipt Date: 20240906
  Transmission Date: 20241017
  Serious: No
  Sender: DOMPE FARMACEUTICI
  Company Number: US-FARMAPROD-202308-202310-3156

PATIENT
  Sex: Female
  Weight: 59.33 kg

DRUGS (12)
  1. OXERVATE [Suspect]
     Active Substance: CENEGERMIN-BKBJ
     Indication: Neurotrophic keratopathy
     Route: 047
     Dates: start: 20231019
  2. GENTEAL TEARS SEVERE [Concomitant]
     Active Substance: HYPROMELLOSE 2910 (4000 MPA.S)
  3. ARTIFICIAL TEAR [Concomitant]
     Active Substance: LANOLIN\MINERAL OIL\PETROLATUM
  4. RITUXAN [Concomitant]
     Active Substance: RITUXIMAB
  5. METHOTREXATE [Concomitant]
     Active Substance: METHOTREXATE
     Dosage: VIAL
  6. FAMOTIDINE [Concomitant]
     Active Substance: FAMOTIDINE
  7. MUCINEX [Concomitant]
     Active Substance: GUAIFENESIN
     Dosage: 12H
  8. ATORVASTATIN CALCIUM [Concomitant]
     Active Substance: ATORVASTATIN CALCIUM
  9. VALSARTAN [Concomitant]
     Active Substance: VALSARTAN
  10. KRILL OIL [Concomitant]
     Active Substance: DIETARY SUPPLEMENT\KRILL OIL
  11. OMEPRAZOLE [Concomitant]
     Active Substance: OMEPRAZOLE
  12. LEVOTHYROXINE SODIUM [Concomitant]
     Active Substance: LEVOTHYROXINE SODIUM

REACTIONS (1)
  - Eye pain [Recovering/Resolving]
